FAERS Safety Report 13905222 (Version 4)
Quarter: 2020Q4

REPORT INFORMATION
  Report Type: Spontaneous
  Country: US (occurrence: US)
  Receive Date: 20170825
  Receipt Date: 20201029
  Transmission Date: 20210113
  Serious: Yes (Hospitalization)
  Sender: FDA-Public Use
  Company Number: US-PFIZER INC-2017365265

PATIENT
  Age: 5 Decade
  Sex: Male

DRUGS (4)
  1. RAPAMUNE [Suspect]
     Active Substance: SIROLIMUS
     Indication: PANCREAS TRANSPLANT REJECTION
     Dosage: 0.5 MG, 1X/DAY (0.5MG TABLET BY MOUTH ONCE DAIY)
     Route: 048
     Dates: start: 20130526
  2. RAPAMUNE [Suspect]
     Active Substance: SIROLIMUS
     Dosage: 0.5MG TAB (5 DF, DAILY)
     Route: 048
  3. SODIUM BICARBONATE. [Concomitant]
     Active Substance: SODIUM BICARBONATE
     Indication: BLOOD BICARBONATE DECREASED
     Dosage: FOUR 650MG TABLETS MORNING AND EVENING
  4. RAPAMUNE [Suspect]
     Active Substance: SIROLIMUS
     Indication: KIDNEY TRANSPLANT REJECTION
     Dosage: 1 MG, DAILY (TAKE 2 TABLETS BY MOUTH DAILY)
     Route: 048

REACTIONS (6)
  - Headache [Recovered/Resolved]
  - Blood bicarbonate decreased [Unknown]
  - Vomiting [Recovered/Resolved]
  - Dizziness [Recovered/Resolved]
  - Retching [Recovered/Resolved]
  - Blood potassium decreased [Unknown]

NARRATIVE: CASE EVENT DATE: 20170719
